FAERS Safety Report 6788746-1 (Version None)
Quarter: 2010Q2

REPORT INFORMATION
  Report Type: 
  Country: None (occurrence: None)
  Receive Date: 20100621
  Receipt Date: 20100608
  Transmission Date: 20101027
  Serious: Yes (Other)
  Sender: FDA-Public Use
  Company Number: 7004718

PATIENT
  Age: 47 Year
  Sex: Female
  Weight: 61 kg

DRUGS (3)
  1. REBIF [Suspect]
     Indication: MULTIPLE SCLEROSIS
     Dosage: 44 MCG, 3 IN 1 WK, SUBCUTANEOUS
     Route: 058
     Dates: start: 20070101
  2. BUPROPION HCL [Concomitant]
  3. AMANTADINE HCL [Concomitant]

REACTIONS (3)
  - LABORATORY TEST ABNORMAL [None]
  - LIVEDO RETICULARIS [None]
  - THROMBOSIS [None]
